FAERS Safety Report 24590962 (Version 3)
Quarter: 2025Q4

REPORT INFORMATION
  Report Type: Report from Study
  Country: CA (occurrence: None)
  Receive Date: 20241107
  Receipt Date: 20251105
  Transmission Date: 20260117
  Serious: Yes (Other)
  Sender: UCB
  Company Number: CA-UCBSA-2024057209

PATIENT

DRUGS (6)
  1. CERTOLIZUMAB PEGOL [Suspect]
     Active Substance: CERTOLIZUMAB PEGOL
     Indication: Psoriatic arthropathy
     Dosage: 400 MILLIGRAM, EV 2 WEEKS(QOW)
  2. CERTOLIZUMAB PEGOL [Suspect]
     Active Substance: CERTOLIZUMAB PEGOL
     Dosage: 200 MILLIGRAM, EV 2 WEEKS(QOW)
  3. PIROXICAM [Concomitant]
     Active Substance: PIROXICAM
     Indication: Product used for unknown indication
     Dosage: 20 MILLIGRAM, 4X/DAY (QID)
  4. PIROXICAM [Concomitant]
     Active Substance: PIROXICAM
     Dosage: 20 MILLIGRAM, ONCE DAILY (QD)
  5. PANTOPRAZOLE SODIUM [Concomitant]
     Active Substance: PANTOPRAZOLE SODIUM
     Indication: Product used for unknown indication
     Dosage: 40 MILLIGRAM, 4X/DAY (QID)
  6. PANTOPRAZOLE SODIUM [Concomitant]
     Active Substance: PANTOPRAZOLE SODIUM
     Dosage: 40 MILLIGRAM, ONCE DAILY (QD)

REACTIONS (7)
  - Psoriatic arthropathy [Not Recovered/Not Resolved]
  - Crohn^s disease [Unknown]
  - Pneumonia [Not Recovered/Not Resolved]
  - Faeces soft [Unknown]
  - Gastrointestinal disorder [Recovering/Resolving]
  - Adverse event [Not Recovered/Not Resolved]
  - Drug ineffective [Unknown]
